FAERS Safety Report 20001434 (Version 1)
Quarter: 2021Q4

REPORT INFORMATION
  Report Type: Other
  Country: IN (occurrence: IN)
  Receive Date: 20211027
  Receipt Date: 20211027
  Transmission Date: 20220303
  Serious: Yes (Death, Hospitalization)
  Sender: FDA-Public Use
  Company Number: IN-ROCHE-2940073

PATIENT

DRUGS (1)
  1. TOCILIZUMAB [Suspect]
     Active Substance: TOCILIZUMAB
     Indication: COVID-19
     Route: 065

REACTIONS (8)
  - Hepatitis [Fatal]
  - Condition aggravated [Fatal]
  - Death [Fatal]
  - Hypofibrinogenaemia [Fatal]
  - Thrombocytopenia [Fatal]
  - Acute kidney injury [Fatal]
  - Respiratory failure [Fatal]
  - Off label use [Fatal]
